FAERS Safety Report 11345637 (Version 1)
Quarter: 2015Q3

REPORT INFORMATION
  Report Type: Spontaneous
  Country: JP (occurrence: JP)
  Receive Date: 20150806
  Receipt Date: 20150806
  Transmission Date: 20151125
  Serious: Yes (Hospitalization, Other)
  Sender: FDA-Public Use
  Company Number: JP-KOWA-15JP001007

PATIENT
  Age: 44 Year
  Sex: Male
  Weight: 93.6 kg

DRUGS (8)
  1. DEPAS [Suspect]
     Active Substance: ETIZOLAM
     Dosage: 0.5 MG, TID
     Route: 048
     Dates: start: 201306, end: 201503
  2. LYRICA [Suspect]
     Active Substance: PREGABALIN
     Dosage: UNK, PRN
     Route: 048
     Dates: end: 20150602
  3. LEXAPRO [Suspect]
     Active Substance: ESCITALOPRAM OXALATE
     Dosage: 10 MG, QD
     Route: 048
     Dates: start: 201306
  4. ACTOS [Suspect]
     Active Substance: PIOGLITAZONE HYDROCHLORIDE
     Dosage: 15 MG, QD
     Route: 048
     Dates: start: 201312
  5. SOLANAX [Concomitant]
     Active Substance: ALPRAZOLAM
     Dosage: UNK, UNK
     Route: 048
  6. LIVALO [Suspect]
     Active Substance: PITAVASTATIN CALCIUM
     Dosage: 2 MG, QD
     Route: 048
     Dates: start: 201405
  7. DEPAS [Suspect]
     Active Substance: ETIZOLAM
     Dosage: 1.0 MG, TID
     Route: 048
     Dates: start: 201503, end: 20150602
  8. AMOXAN [Concomitant]
     Active Substance: AMOXAPINE
     Dosage: UNK, UNK
     Route: 048

REACTIONS (6)
  - Aspartate aminotransferase increased [Recovered/Resolved]
  - Blood lactate dehydrogenase increased [Recovered/Resolved]
  - Headache [Unknown]
  - Chest pain [Unknown]
  - Blood creatine phosphokinase increased [Recovered/Resolved]
  - Alanine aminotransferase increased [Recovered/Resolved]

NARRATIVE: CASE EVENT DATE: 20150602
